FAERS Safety Report 6311411-1 (Version None)
Quarter: 2009Q3

REPORT INFORMATION
  Report Type: 
  Country: None (occurrence: None)
  Receive Date: 20090817
  Receipt Date: 20090803
  Transmission Date: 20100115
  Serious: Yes (Other)
  Sender: FDA-Public Use
  Company Number: US-PFIZER INC-2009250740

PATIENT
  Sex: Male
  Weight: 83.9 kg

DRUGS (5)
  1. CHANTIX [Suspect]
     Indication: SMOKING CESSATION THERAPY
     Dosage: 1 MG, 2X/DAY
     Route: 048
     Dates: start: 20090101, end: 20090729
  2. POSACONAZOLE [Interacting]
     Indication: FUNGAL INFECTION
     Dosage: 200 MG, 2X/DAY
     Route: 048
     Dates: start: 20090701
  3. LEXAPRO [Concomitant]
     Indication: PAIN MANAGEMENT
     Dosage: 20 MG, 1X/DAY
     Route: 048
     Dates: start: 20090201
  4. LEXAPRO [Concomitant]
     Indication: DEPRESSION
  5. LEXAPRO [Concomitant]
     Indication: ANXIETY

REACTIONS (4)
  - DRUG INTERACTION [None]
  - NAUSEA [None]
  - PANCREATITIS [None]
  - VOMITING [None]
